FAERS Safety Report 5093630-8 (Version None)
Quarter: 2006Q3

REPORT INFORMATION
  Report Type: 
  Country: None (occurrence: None)
  Receive Date: 20060829
  Receipt Date: 20060814
  Transmission Date: 20061208
  Serious: Yes (Death)
  Sender: FDA-Public Use
  Company Number: 2006S1006699

PATIENT
  Age: 62 Year
  Sex: Female

DRUGS (6)
  1. CLOZAPINE [Suspect]
     Indication: PSYCHOTIC DISORDER
     Dosage: 200 MG HS PO
     Route: 048
     Dates: start: 20031001, end: 20060101
  2. ADVAIR DISKUS 100/50 [Concomitant]
  3. RANITIDINE [Concomitant]
  4. VALPROATE SODIUM [Concomitant]
  5. OXYBUTYNIN [Concomitant]
  6. SULINDAC [Concomitant]

REACTIONS (3)
  - GRANULOCYTOPENIA [None]
  - LETHARGY [None]
  - LOSS OF CONSCIOUSNESS [None]
